FAERS Safety Report 7450920-9 (Version None)
Quarter: 2011Q2

REPORT INFORMATION
  Report Type: 
  Country: None (occurrence: None)
  Receive Date: 20110502
  Receipt Date: 20110427
  Transmission Date: 20111010
  Serious: No
  Sender: FDA-Public Use
  Company Number: US-PFIZER INC-2011091099

PATIENT
  Sex: Female
  Weight: 65.3 kg

DRUGS (2)
  1. LUMIGAN [Concomitant]
     Indication: GLAUCOMA
     Dosage: 1 GTT, 1X/DAY
     Route: 047
     Dates: start: 20090101
  2. PREMARIN [Suspect]
     Indication: BLADDER DISORDER
     Dosage: UNK
     Route: 048
     Dates: start: 20110324, end: 20110425

REACTIONS (4)
  - TOOTHACHE [None]
  - DYSPHAGIA [None]
  - MASTICATION DISORDER [None]
  - INSOMNIA [None]
